FAERS Safety Report 9394403 (Version 1)
Quarter: 2013Q3

REPORT INFORMATION
  Report Type: Spontaneous
  Country: US (occurrence: None)
  Receive Date: 20130709
  Receipt Date: 20130709
  Transmission Date: 20140515
  Serious: Yes (Disabling)
  Sender: FDA-Public Use
  Company Number: None

PATIENT
  Sex: Female

DRUGS (22)
  1. REGLAN, METOCLOPRAMIDE [Suspect]
     Indication: GASTROOESOPHAGEAL REFLUX DISEASE
     Route: 048
     Dates: start: 200201, end: 20121231
  2. ALENDRONATE [Concomitant]
  3. OMEPRAZOLE [Concomitant]
  4. LOSARTAN [Concomitant]
  5. METOPROLOL [Concomitant]
  6. MONTELUKAST [Concomitant]
  7. SIMVASTATIN [Concomitant]
  8. SYMBICORT [Concomitant]
  9. COMBIVENT INHALERS [Concomitant]
  10. CYMBALTA [Concomitant]
  11. FOLIC ACID [Concomitant]
  12. METHOTREXATE [Concomitant]
  13. ENBREL [Concomitant]
  14. DILITIAZEM [Concomitant]
  15. BIOTENE [Concomitant]
  16. MULTI-VITAMIN [Concomitant]
  17. MELATONIN [Concomitant]
  18. MIRALAX [Concomitant]
  19. ASPIRIN [Concomitant]
  20. VIT D [Concomitant]
  21. REFRESH EYE DROPS [Concomitant]
  22. SYSTANE EYE GEL [Concomitant]

REACTIONS (3)
  - Restless legs syndrome [None]
  - Parkinson^s disease [None]
  - Tardive dyskinesia [None]
